FAERS Safety Report 10070146 (Version 1)
Quarter: 2014Q2

REPORT INFORMATION
  Report Type: Spontaneous
  Country: GR (occurrence: None)
  Receive Date: 20140408
  Receipt Date: 20140408
  Transmission Date: 20141212
  Serious: Yes (Hospitalization)
  Sender: FDA-Public Use
  Company Number: IPC201403-000150

PATIENT
  Age: 37 Year
  Sex: Female

DRUGS (2)
  1. HYDROXYCHLOROQUINE SULFATE [Suspect]
     Indication: PSORIATIC ARTHROPATHY
     Dosage: 100 MG PER DAY, PER ORAL
     Route: 048
  2. METHYLPREDNISOLONE (METHYLPREDNISOLONE) [Concomitant]

REACTIONS (4)
  - Erythrodermic psoriasis [None]
  - Pustular psoriasis [None]
  - Psoriasis [None]
  - Maternal exposure timing unspecified [None]
